FAERS Safety Report 7949334-4 (Version None)
Quarter: 2011Q4

REPORT INFORMATION
  Report Type: 
  Country: None (occurrence: None)
  Receive Date: 20111125
  Receipt Date: 20111116
  Transmission Date: 20120403
  Serious: Yes (Other)
  Sender: FDA-Public Use
  Company Number: AUR-APL-2011-05579

PATIENT
  Age: 73 Year
  Sex: Female
  Weight: 72.5755 kg

DRUGS (15)
  1. ASPIRIN [Concomitant]
  2. LORATADINE [Concomitant]
  3. ZOLPIDEM [Suspect]
     Indication: DYSTONIA
     Dosage: 30 MG (10 MG, 3 IN 1 D), ORAL
     Route: 048
     Dates: start: 20110701
  4. ZOLPIDEM [Suspect]
     Indication: DYSKINESIA
     Dosage: 30 MG (10 MG, 3 IN 1 D), ORAL
     Route: 048
     Dates: start: 20110701
  5. ADVAIR DISKUS 100/50 [Concomitant]
  6. AMLODIPINE [Concomitant]
  7. TRAMADOL HCL [Concomitant]
  8. LOVASTATIN [Concomitant]
  9. LEVOTHYROXINE SODIUM [Concomitant]
  10. HYDROCHLOROTHIAZIDE [Concomitant]
  11. OMEPRAZOLE [Concomitant]
  12. XENAZINE [Concomitant]
  13. PROAIR (FLUTICASONE PROPIONATE) [Concomitant]
  14. FLUTICASONE PROPIONATE [Concomitant]
  15. LEXAPRO [Concomitant]

REACTIONS (2)
  - DRUG EFFECT DECREASED [None]
  - PRODUCT SUBSTITUTION ISSUE [None]
